FAERS Safety Report 8032699-5 (Version None)
Quarter: 2012Q1

REPORT INFORMATION
  Report Type: 
  Country: None (occurrence: None)
  Receive Date: 20120110
  Receipt Date: 20120103
  Transmission Date: 20120608
  Serious: No
  Sender: FDA-Public Use
  Company Number: US-B.I. PHARMACEUTICALS,INC./RIDGEFIELD-2011-BP-26241BP

PATIENT
  Sex: Male

DRUGS (17)
  1. SINEMET [Concomitant]
     Indication: PARKINSON'S DISEASE
     Route: 048
     Dates: start: 20060101
  2. LASIX [Concomitant]
     Indication: OEDEMA PERIPHERAL
     Dosage: 60 MG
     Route: 048
     Dates: start: 20100101
  3. LABETALOL HCL [Concomitant]
     Indication: HYPERTENSION
     Dosage: 600 MG
     Route: 048
     Dates: start: 20010101
  4. ENABLEX [Concomitant]
     Indication: URINARY INCONTINENCE
  5. ASPIRIN [Concomitant]
     Indication: CARDIAC DISORDER
  6. LASIX [Concomitant]
     Indication: CARDIAC FAILURE
  7. CO Q10 [Concomitant]
     Indication: SUPPLEMENTATION THERAPY
     Dosage: 100 MG
     Route: 048
     Dates: start: 20100101
  8. IRON [Concomitant]
     Indication: SUPPLEMENTATION THERAPY
  9. GLIMEPIRIDE [Concomitant]
     Indication: TYPE 2 DIABETES MELLITUS
     Dosage: 1 MG
     Route: 048
     Dates: start: 20060101
  10. LOSARTAN POTASSIUM [Concomitant]
     Indication: HYPERTENSION
     Dosage: 100 MG
     Route: 048
     Dates: start: 20100101
  11. PRILOSEC [Concomitant]
     Indication: GASTROOESOPHAGEAL REFLUX DISEASE
     Route: 048
     Dates: start: 20060101
  12. VITAMIN D [Concomitant]
     Indication: SUPPLEMENTATION THERAPY
     Dates: start: 20100101
  13. METOLAZONE [Concomitant]
     Indication: OEDEMA PERIPHERAL
     Route: 048
     Dates: start: 20111001
  14. MIRAPEX [Suspect]
     Dosage: 1.5 MG
     Route: 048
     Dates: start: 20111202
  15. MIRAPEX [Suspect]
     Indication: PARKINSON'S DISEASE
     Dosage: 0.75 MG
     Route: 048
     Dates: start: 20111111
  16. SIMVASTATIN [Concomitant]
     Indication: BLOOD CHOLESTEROL INCREASED
     Dosage: 20 MG
     Route: 048
     Dates: start: 20100101
  17. VITAMIN C [Concomitant]
     Indication: SUPPLEMENTATION THERAPY
     Dates: start: 20100101

REACTIONS (3)
  - GAIT DISTURBANCE [None]
  - DIZZINESS [None]
  - LETHARGY [None]
